FAERS Safety Report 11123174 (Version 2)
Quarter: 2015Q3

REPORT INFORMATION
  Report Type: Spontaneous
  Country: BR (occurrence: BR)
  Receive Date: 20150519
  Receipt Date: 20150828
  Transmission Date: 20151125
  Serious: Yes (Hospitalization)
  Sender: FDA-Public Use
  Company Number: BR-ABBVIE-15P-020-1393821-00

PATIENT
  Age: 5 Month
  Sex: Male
  Weight: 9.9 kg

DRUGS (2)
  1. KLARICID PEDIATRICO [Suspect]
     Active Substance: CLARITHROMYCIN
     Indication: BRONCHIOLITIS
     Route: 048
     Dates: start: 201504
  2. KLARICID PEDIATRICO [Suspect]
     Active Substance: CLARITHROMYCIN
     Indication: PNEUMONIA
     Route: 065

REACTIONS (2)
  - Pneumonia [Recovered/Resolved]
  - Drug ineffective [Recovered/Resolved]

NARRATIVE: CASE EVENT DATE: 201504
